FAERS Safety Report 20200792 (Version 1)
Quarter: 2021Q4

REPORT INFORMATION
  Report Type: Spontaneous
  Country: US (occurrence: None)
  Receive Date: 20211217
  Receipt Date: 20211217
  Transmission Date: 20220303
  Serious: No
  Sender: FDA-Public Use
  Company Number: None

PATIENT

DRUGS (2)
  1. PITOCIN [Suspect]
     Active Substance: OXYTOCIN
  2. PITRESSIN [Suspect]
     Active Substance: VASOPRESSIN

REACTIONS (3)
  - Intercepted product selection error [None]
  - Product name confusion [None]
  - Product name confusion [None]
